FAERS Safety Report 9068375 (Version 2)
Quarter: 2013Q1

REPORT INFORMATION
  Report Type: Report from Study
  Country: US (occurrence: US)
  Receive Date: 20130206
  Receipt Date: 20130219
  Transmission Date: 20140127
  Serious: Yes (Hospitalization)
  Sender: FDA-Public Use
  Company Number: US-ABBOTT-13P-163-1042515-00

PATIENT
  Age: 25 Year
  Sex: Male

DRUGS (3)
  1. HUMIRA [Suspect]
     Indication: CROHN^S DISEASE
  2. PROZAC [Concomitant]
     Indication: DEPRESSION
     Dosage: 80MG DAILY
  3. LAMICTAL [Concomitant]
     Indication: DEPRESSION
     Dosage: 400MG DAILY

REACTIONS (5)
  - Depression [Unknown]
  - Injection site pain [Unknown]
  - Injection site erythema [Unknown]
  - Incorrect dose administered [Unknown]
  - Wrong technique in drug usage process [Unknown]
